FAERS Safety Report 10203352 (Version 1)
Quarter: 2014Q2

REPORT INFORMATION
  Report Type: Report from Study
  Country: BD (occurrence: BD)
  Receive Date: 20140529
  Receipt Date: 20140529
  Transmission Date: 20141212
  Serious: Yes (Death, Hospitalization, Other)
  Sender: FDA-Public Use
  Company Number: PHHY2014BD064636

PATIENT
  Age: 80 Year
  Sex: Female
  Weight: 44 kg

DRUGS (1)
  1. ACLASTA [Suspect]
     Indication: OSTEOPOROSIS
     Dosage: 5MG IN 100ML SOLUTION
     Route: 042
     Dates: start: 20130828

REACTIONS (3)
  - Hepatitis B [Fatal]
  - Hepatitis C [Unknown]
  - Diabetes mellitus [Unknown]
